FAERS Safety Report 17197748 (Version 2)
Quarter: 2019Q4

REPORT INFORMATION
  Report Type: Spontaneous
  Country: US (occurrence: US)
  Receive Date: 20191224
  Receipt Date: 20191230
  Transmission Date: 20200122
  Serious: Yes (Other)
  Sender: FDA-Public Use
  Company Number: US-VIFOR (INTERNATIONAL) INC.-VIT-2019-17148

PATIENT
  Age: 70 Year
  Sex: Female

DRUGS (1)
  1. VELTASSA [Suspect]
     Active Substance: PATIROMER
     Indication: HYPERKALAEMIA
     Route: 048
     Dates: start: 20191029

REACTIONS (4)
  - Catheter placement [Unknown]
  - Oral pain [Not Recovered/Not Resolved]
  - Catheter site pain [Unknown]
  - Dental operation [Not Recovered/Not Resolved]

NARRATIVE: CASE EVENT DATE: 2019
